FAERS Safety Report 9073985 (Version 1)
Quarter: 2013Q1

REPORT INFORMATION
  Report Type: Spontaneous
  Country: US (occurrence: US)
  Receive Date: 20130129
  Receipt Date: 20130129
  Transmission Date: 20140127
  Serious: Yes (Hospitalization, Other)
  Sender: FDA-Public Use
  Company Number: US-AMGEN-USASP2011041024

PATIENT
  Age: 53 Year
  Sex: Female

DRUGS (7)
  1. ENBREL [Suspect]
     Indication: RHEUMATOID ARTHRITIS
     Dosage: 50 MG, QWK
     Dates: start: 20110709, end: 20110731
  2. LISINOPRIL [Concomitant]
  3. HYDROCHLOROTHIAZIDE [Concomitant]
     Dosage: 25 MG, UNK
     Route: 048
  4. LEVOTHYROXINE [Concomitant]
     Dosage: 100 MUG, BID
     Route: 048
  5. CYMBALTA [Concomitant]
  6. IBUPROFEN [Concomitant]
     Dosage: 800 MG, TID
     Route: 048
  7. LYRICA [Concomitant]
     Dosage: 300 MG, BID
     Route: 048

REACTIONS (3)
  - Headache [Recovered/Resolved]
  - Vasculitis [Unknown]
  - Nuclear magnetic resonance imaging brain abnormal [Unknown]
